FAERS Safety Report 24186630 (Version 1)
Quarter: 2024Q3

REPORT INFORMATION
  Report Type: Report from Study
  Country: CO (occurrence: CO)
  Receive Date: 20240808
  Receipt Date: 20240808
  Transmission Date: 20241016
  Serious: Yes (Death, Hospitalization, Other)
  Sender: UCB
  Company Number: CO-UCBSA-2024039680

PATIENT
  Age: 75 Year
  Sex: Male

DRUGS (2)
  1. ROTIGOTINE [Suspect]
     Active Substance: ROTIGOTINE
     Indication: Parkinson^s disease
     Dosage: 6 MILLIGRAM X 1 PER 24 HOURS
     Route: 062
     Dates: start: 20231010, end: 20231128
  2. ROTIGOTINE [Suspect]
     Active Substance: ROTIGOTINE
     Indication: Off label use
     Dosage: 8 MILLIGRAM X 1 PER 24 HOURS
     Route: 062
     Dates: start: 20231129, end: 20240609

REACTIONS (3)
  - Pancreatic failure [Fatal]
  - Nausea [Unknown]
  - Off label use [Unknown]

NARRATIVE: CASE EVENT DATE: 20231010
